FAERS Safety Report 25182510 (Version 1)
Quarter: 2025Q2

REPORT INFORMATION
  Report Type: Spontaneous
  Country: US (occurrence: US)
  Receive Date: 20250410
  Receipt Date: 20250410
  Transmission Date: 20250717
  Serious: Yes (Life-Threatening, Hospitalization, Other)
  Sender: CONCORD BIOTECH
  Company Number: US-CBL-003054

PATIENT
  Age: 41 Year
  Sex: Male

DRUGS (3)
  1. TACROLIMUS [Suspect]
     Active Substance: TACROLIMUS
     Indication: Prophylaxis against transplant rejection
     Route: 065
  2. MYCOPHENOLATE MOFETIL [Suspect]
     Active Substance: MYCOPHENOLATE MOFETIL
     Indication: Prophylaxis against transplant rejection
     Route: 065
  3. TACROLIMUS [Suspect]
     Active Substance: TACROLIMUS
     Indication: Prophylaxis against transplant rejection
     Route: 065

REACTIONS (6)
  - Thrombotic microangiopathy [Recovered/Resolved]
  - Kidney transplant rejection [Recovered/Resolved]
  - Chronic allograft nephropathy [Recovered/Resolved]
  - Arterial fibrosis [Recovered/Resolved]
  - Tubulointerstitial nephritis [Recovered/Resolved]
  - Immunosuppressant drug level increased [Recovered/Resolved]
